FAERS Safety Report 13024482 (Version 1)
Quarter: 2016Q4

REPORT INFORMATION
  Report Type: Spontaneous
  Country: JP (occurrence: JP)
  Receive Date: 20161213
  Receipt Date: 20161213
  Transmission Date: 20170207
  Serious: Yes (Death)
  Sender: FDA-Public Use
  Company Number: JP-PFIZER INC-2016569096

PATIENT

DRUGS (1)
  1. INLYTA [Suspect]
     Active Substance: AXITINIB
     Dosage: UNK
     Route: 048

REACTIONS (5)
  - General physical health deterioration [Unknown]
  - Neoplasm progression [Unknown]
  - Dehydration [Unknown]
  - Acute myocardial infarction [Fatal]
  - Diarrhoea [Unknown]
